FAERS Safety Report 24046282 (Version 2)
Quarter: 2024Q3

REPORT INFORMATION
  Report Type: Spontaneous
  Country: HR (occurrence: HR)
  Receive Date: 20240703
  Receipt Date: 20240816
  Transmission Date: 20241017
  Serious: Yes (Other)
  Sender: UCB
  Company Number: None

PATIENT
  Age: 4 Year
  Sex: Male
  Weight: 20 kg

DRUGS (2)
  1. KEPPRA [Suspect]
     Active Substance: LEVETIRACETAM
     Indication: Electroencephalogram abnormal
     Dosage: 10 MILLILITER, ONCE DAILY (QD)
     Route: 048
     Dates: start: 20240420, end: 20240420
  2. KEPPRA [Suspect]
     Active Substance: LEVETIRACETAM
     Indication: Craniocerebral injury
     Dosage: 0.5 MILLILITER, WEEKLY (QW)
     Route: 048
     Dates: start: 20240604, end: 2024

REACTIONS (9)
  - Initial insomnia [Recovering/Resolving]
  - Mood swings [Recovering/Resolving]
  - Sleep disorder [Recovering/Resolving]
  - Self-destructive behaviour [Recovering/Resolving]
  - Eye pruritus [Recovering/Resolving]
  - Eating disorder [Recovering/Resolving]
  - Seizure [Recovering/Resolving]
  - Product use in unapproved indication [Unknown]
  - Wrong dose [Unknown]

NARRATIVE: CASE EVENT DATE: 20240420
